FAERS Safety Report 5217479-8 (Version None)
Quarter: 2007Q1

REPORT INFORMATION
  Report Type: 
  Country: None (occurrence: None)
  Receive Date: 20070124
  Receipt Date: 20070116
  Transmission Date: 20070707
  Serious: Yes (Death, Other)
  Sender: FDA-Public Use
  Company Number: HQWYE037702FEB05

PATIENT
  Sex: Female

DRUGS (1)
  1. ENBREL [Suspect]
     Indication: RHEUMATOID ARTHRITIS
     Dosage: DOSE NOT PROVIDED
     Dates: start: 19990608

REACTIONS (4)
  - HEPATIC NEOPLASM MALIGNANT [None]
  - INTESTINAL INFARCTION [None]
  - PNEUMONIA [None]
  - STREPTOCOCCAL SEPSIS [None]
